FAERS Safety Report 8920296 (Version 1)
Quarter: 2012Q4

REPORT INFORMATION
  Report Type: 
  Country: MX (occurrence: MX)
  Receive Date: 20121122
  Receipt Date: 20121122
  Transmission Date: 20130627
  Serious: Yes (Other)
  Sender: FDA-Public Use
  Company Number: PHHY2012MX105287

PATIENT
  Age: 76 Year
  Sex: Male

DRUGS (2)
  1. CO-DIOVAN [Suspect]
     Indication: HYPERTENSION
     Dosage: 1 DF, QD
     Route: 048
     Dates: start: 20101228
  2. PARACETAMOL [Concomitant]
     Indication: BONE PAIN
     Dosage: 1 DF, QD
     Route: 048
     Dates: start: 201111

REACTIONS (2)
  - Deafness [Not Recovered/Not Resolved]
  - Hypertension [Not Recovered/Not Resolved]
